FAERS Safety Report 9143457 (Version 2)
Quarter: 2013Q2

REPORT INFORMATION
  Report Type: Spontaneous
  Country: US (occurrence: US)
  Receive Date: 20130306
  Receipt Date: 20130418
  Transmission Date: 20140414
  Serious: Yes (Hospitalization, Other)
  Sender: FDA-Public Use
  Company Number: US-ASTELLAS-2013US002384

PATIENT
  Age: 72 Year
  Sex: Male

DRUGS (1)
  1. MYRBETRIQ [Suspect]
     Indication: POLLAKIURIA
     Dosage: 50 MG, UNKNOWN/D
     Route: 048
     Dates: start: 20130205

REACTIONS (5)
  - Intentional drug misuse [Unknown]
  - Confusional state [Unknown]
  - Cognitive disorder [Unknown]
  - Irritability [Unknown]
  - Memory impairment [Unknown]
